FAERS Safety Report 17733658 (Version 1)
Quarter: 2020Q2

REPORT INFORMATION
  Report Type: Spontaneous
  Country: US (occurrence: US)
  Receive Date: 20200430
  Receipt Date: 20200430
  Transmission Date: 20200714
  Serious: Yes (Hospitalization)
  Sender: FDA-Public Use
  Company Number: None

PATIENT
  Age: 69 Year
  Weight: 86.81 kg

DRUGS (10)
  1. REVLIMID 15 MG [Concomitant]
     Dates: start: 20180523, end: 20200409
  2. LISINOPRIL 20 MG [Concomitant]
     Active Substance: LISINOPRIL
  3. NINLARO [Suspect]
     Active Substance: IXAZOMIB CITRATE
     Indication: PLASMA CELL MYELOMA
     Dosage: ?          OTHER FREQUENCY:ONCE WEEKLY;?
     Route: 048
     Dates: start: 20200406, end: 20200409
  4. ATORVASTATIN 40 MG [Concomitant]
     Active Substance: ATORVASTATIN
  5. FENTANYL 12MCG/HR [Concomitant]
  6. ASPRIN 325MG [Concomitant]
  7. SERTRALINE [Concomitant]
     Active Substance: SERTRALINE HYDROCHLORIDE
  8. ACETAMINOPHEN 325MG [Concomitant]
  9. AMLODIPINE [Concomitant]
     Active Substance: AMLODIPINE BESYLATE
  10. OMEPRAZOLE 20MG [Concomitant]
     Active Substance: OMEPRAZOLE

REACTIONS (2)
  - Acute kidney injury [None]
  - Incorrect dose administered [None]

NARRATIVE: CASE EVENT DATE: 20200409
